FAERS Safety Report 24070828 (Version 1)
Quarter: 2024Q3

REPORT INFORMATION
  Report Type: Spontaneous
  Country: US (occurrence: None)
  Receive Date: 20240709
  Receipt Date: 20240709
  Transmission Date: 20241016
  Serious: No
  Sender: Public
  Company Number: None

PATIENT
  Age: 57 Year
  Sex: Female
  Weight: 63.5 kg

DRUGS (1)
  1. HUMIRA [Suspect]
     Active Substance: ADALIMUMAB
     Indication: Rheumatoid arthritis
     Dosage: OTHER FREQUENCY : EVERY 2WKSABDOMENTHIGH;?
     Route: 058
     Dates: start: 202402

REACTIONS (4)
  - Ear infection [None]
  - Headache [None]
  - Oropharyngeal pain [None]
  - Therapy interrupted [None]
